FAERS Safety Report 4693627-3 (Version None)
Quarter: 2005Q2

REPORT INFORMATION
  Report Type: 
  Country: None (occurrence: None)
  Receive Date: 20050616
  Receipt Date: 20050607
  Transmission Date: 20051028
  Serious: Yes (Hospitalization)
  Sender: FDA-Public Use
  Company Number: 106781ISR

PATIENT
  Age: 56 Year
  Sex: Female

DRUGS (6)
  1. GLATIRAMER ACETATE [Suspect]
     Indication: MULTIPLE SCLEROSIS
     Dosage: 20 MILLIGRAM SUBCUTANEOUS
     Route: 058
     Dates: start: 20050505, end: 20050529
  2. DIHYDROCODEINE [Concomitant]
  3. LANSOPRAZOLE [Concomitant]
  4. CHLORDIAZEPOXIDE HCL [Concomitant]
  5. CLOMIPRAMINE HCL [Concomitant]
  6. ROFECOXIB [Concomitant]

REACTIONS (5)
  - ANEURYSM RUPTURED [None]
  - CIRCULATORY COLLAPSE [None]
  - CONVULSION [None]
  - INTRACRANIAL ANEURYSM [None]
  - SUBARACHNOID HAEMORRHAGE [None]
